FAERS Safety Report 6384619-7 (Version None)
Quarter: 2009Q4

REPORT INFORMATION
  Report Type: 
  Country: None (occurrence: None)
  Receive Date: 20091001
  Receipt Date: 20090922
  Transmission Date: 20100525
  Serious: Yes (Hospitalization, Disabling, Other)
  Sender: FDA-Public Use
  Company Number: PHEH2009US00892

PATIENT
  Sex: Male

DRUGS (2)
  1. ZOMETA [Suspect]
     Indication: NEOPLASM MALIGNANT
     Dosage: UNK
     Dates: start: 20080201, end: 20080101
  2. LUPRON [Concomitant]
     Dosage: UNK
     Dates: start: 20080117

REACTIONS (23)
  - ANHEDONIA [None]
  - ANXIETY [None]
  - BACK PAIN [None]
  - BONE LESION [None]
  - CHRONIC OBSTRUCTIVE PULMONARY DISEASE [None]
  - DERMAL CYST [None]
  - DISCOMFORT [None]
  - DYSPHAGIA [None]
  - DYSPNOEA [None]
  - EMOTIONAL DISTRESS [None]
  - HYPERTENSION [None]
  - INJURY [None]
  - MENTAL DISORDER [None]
  - OSTEONECROSIS [None]
  - PAIN [None]
  - PHYSICAL DISABILITY [None]
  - POLLAKIURIA [None]
  - PURULENT DISCHARGE [None]
  - QUALITY OF LIFE DECREASED [None]
  - SCAR [None]
  - SPINAL OSTEOARTHRITIS [None]
  - SYNOVIAL CYST [None]
  - TENDON OPERATION [None]
